FAERS Safety Report 10424740 (Version 1)
Quarter: 2014Q3

REPORT INFORMATION
  Report Type: Spontaneous
  Country: FR (occurrence: FR)
  Receive Date: 20140902
  Receipt Date: 20140902
  Transmission Date: 20150326
  Serious: Yes (Hospitalization)
  Sender: FDA-Public Use
  Company Number: FR-ABBVIE-14P-056-1278506-00

PATIENT
  Age: 78 Year
  Sex: Male

DRUGS (1)
  1. ZECLAR [Suspect]
     Active Substance: CLARITHROMYCIN
     Indication: PRODUCT USED FOR UNKNOWN INDICATION
     Route: 048
     Dates: start: 20140329, end: 20140402

REACTIONS (1)
  - Tongue ulceration [Recovered/Resolved]

NARRATIVE: CASE EVENT DATE: 20140402
